FAERS Safety Report 4875627-3 (Version None)
Quarter: 2006Q1

REPORT INFORMATION
  Report Type: 
  Country: None (occurrence: None)
  Receive Date: 20060109
  Receipt Date: 20051230
  Transmission Date: 20060701
  Serious: Yes (Hospitalization)
  Sender: FDA-Public Use
  Company Number: US-KINGPHARMUSA00001-K200501658

PATIENT
  Age: 81 Year
  Sex: Female

DRUGS (6)
  1. ALTACE [Suspect]
     Indication: HYPERTENSION
     Dosage: 5 MG, QD
     Route: 048
  2. PYOSTACINE [Suspect]
     Indication: ULCER
     Dosage: 1500 MG, QD
     Route: 048
     Dates: start: 20051104, end: 20051114
  3. LASILIX [Concomitant]
     Dosage: 40 MG, QD
     Route: 048
  4. VASTAREL ^BIOPHARMA^ [Concomitant]
     Route: 048
  5. PARIET [Concomitant]
     Route: 048
  6. XANAX [Concomitant]
     Dosage: UNK, UNK
     Route: 048

REACTIONS (3)
  - ERYSIPELAS [None]
  - RASH MACULO-PAPULAR [None]
  - VASCULITIS NECROTISING [None]
